FAERS Safety Report 6732605-7 (Version None)
Quarter: 2010Q2

REPORT INFORMATION
  Report Type: 
  Country: None (occurrence: None)
  Receive Date: 20100519
  Receipt Date: 20100511
  Transmission Date: 20101027
  Serious: Yes (Other)
  Sender: FDA-Public Use
  Company Number: PHHY2010CH03169

PATIENT
  Sex: Male

DRUGS (2)
  1. SEBIVO [Suspect]
     Dosage: UNK
     Dates: end: 20100101
  2. LAMIVUDINE [Concomitant]

REACTIONS (1)
  - PANCYTOPENIA [None]
